FAERS Safety Report 4983194-9 (Version None)
Quarter: 2006Q2

REPORT INFORMATION
  Report Type: 
  Country: None (occurrence: None)
  Receive Date: 20060426
  Receipt Date: 20060413
  Transmission Date: 20061013
  Serious: Yes (Life-Threatening, Other)
  Sender: FDA-Public Use
  Company Number: GB-GLAXOSMITHKLINE-B0420494A

PATIENT
  Age: 70 Year
  Weight: 57.5 kg

DRUGS (6)
  1. AUGMENTIN '125' [Suspect]
     Indication: ABSCESS
     Route: 048
     Dates: start: 20051201, end: 20060101
  2. IBUPROFEN [Suspect]
     Route: 048
     Dates: start: 20051201, end: 20060101
  3. MOVICOL [Concomitant]
     Indication: CONSTIPATION
     Route: 048
     Dates: start: 20060116
  4. OMEPRAZOLE [Concomitant]
     Indication: GASTRITIS
     Dosage: 40MG PER DAY
     Route: 048
     Dates: start: 20060113
  5. LACTULOSE [Concomitant]
     Indication: CONSTIPATION
     Dosage: 10ML PER DAY
     Route: 048
     Dates: start: 20060116
  6. PARACETAMOL [Concomitant]
     Indication: PAIN
     Dosage: 1 PER DAY
     Route: 048
     Dates: start: 20060116

REACTIONS (2)
  - DUODENAL ULCER HAEMORRHAGE [None]
  - JAUNDICE CHOLESTATIC [None]
